FAERS Safety Report 8186276-6 (Version None)
Quarter: 2012Q1

REPORT INFORMATION
  Report Type: 
  Country: None (occurrence: None)
  Receive Date: 20120306
  Receipt Date: 20120227
  Transmission Date: 20120608
  Serious: Yes (Other)
  Sender: FDA-Public Use
  Company Number: US-BAYER-201039341NA

PATIENT
  Age: 47 Year
  Sex: Female

DRUGS (6)
  1. ALBUTEROL [Concomitant]
     Indication: ASTHMA
     Dosage: UNK
     Dates: start: 19980101, end: 20090101
  2. IBUPROFEN [Concomitant]
  3. YASMIN [Suspect]
     Dosage: UNK
     Route: 048
     Dates: start: 20020801, end: 20050707
  4. MAXAIR [Concomitant]
     Indication: ASTHMA
     Dosage: UNK
     Dates: start: 19980101, end: 20100101
  5. ADVAIR DISKUS 100/50 [Concomitant]
     Indication: ASTHMA
     Dosage: UNK
     Dates: start: 19980101, end: 20090101
  6. ZYRTEC [Concomitant]
     Indication: MULTIPLE ALLERGIES
     Dosage: UNK
     Dates: start: 19980101, end: 20100101

REACTIONS (2)
  - DEEP VEIN THROMBOSIS [None]
  - THROMBOSIS [None]
